FAERS Safety Report 4991166-3 (Version None)
Quarter: 2006Q2

REPORT INFORMATION
  Report Type: 
  Country: None (occurrence: None)
  Receive Date: 20060428
  Receipt Date: 20060418
  Transmission Date: 20061013
  Serious: Yes (Hospitalization)
  Sender: FDA-Public Use
  Company Number: 2006023935

PATIENT
  Age: 25 Year
  Sex: Female
  Weight: 60 kg

DRUGS (3)
  1. NEURONTIN [Suspect]
     Indication: POST HERPETIC NEURALGIA
     Dosage: 1800 MG (1 D), ORAL
     Route: 048
     Dates: start: 20060104
  2. ZELITREX (VALACICLOVIR) [Concomitant]
  3. IBUPROFENE (IBUPROFEN) [Concomitant]

REACTIONS (8)
  - DEPRESSED LEVEL OF CONSCIOUSNESS [None]
  - DRUG TOXICITY [None]
  - DRUG WITHDRAWAL SYNDROME [None]
  - HEADACHE [None]
  - MALAISE [None]
  - NAUSEA [None]
  - TREMOR [None]
  - VERTIGO [None]
